FAERS Safety Report 11776756 (Version 1)
Quarter: 2015Q4

REPORT INFORMATION
  Report Type: Spontaneous
  Country: None (occurrence: None)
  Receive Date: 20151123
  Receipt Date: 20151123
  Transmission Date: 20160304
  Serious: Yes (Other)
  Sender: FDA-Public Use
  Company Number: None

PATIENT
  Age: 28 Year
  Sex: Male

DRUGS (2)
  1. TRYPTOMER [Suspect]
     Active Substance: AMITRIPTYLINE
     Indication: DEPRESSION
     Dosage: ONE NIGHT?QD?ORAL
     Route: 048
  2. TRYPTOMER [Suspect]
     Active Substance: AMITRIPTYLINE
     Indication: ANXIETY
     Dosage: ONE NIGHT?QD?ORAL
     Route: 048

REACTIONS (1)
  - Weight increased [None]
